FAERS Safety Report 4854791-6 (Version None)
Quarter: 2005Q4

REPORT INFORMATION
  Report Type: 
  Country: None (occurrence: None)
  Receive Date: 20051215
  Receipt Date: 20051206
  Transmission Date: 20060501
  Serious: Yes (Hospitalization)
  Sender: FDA-Public Use
  Company Number: PHRM2005FR03199

PATIENT
  Age: 46 Year
  Sex: Female
  Weight: 60 kg

DRUGS (3)
  1. SINGULAIR [Concomitant]
     Dosage: 1 DF, BID
     Route: 048
  2. SYMBICORT TURBUHALER [Concomitant]
     Indication: ASTHMA
     Dosage: 2 DF, BID
  3. VOLTAREN [Suspect]
     Route: 048
     Dates: start: 20040515, end: 20040515

REACTIONS (2)
  - BRONCHOSPASM [None]
  - RHINITIS [None]
